FAERS Safety Report 13600796 (Version 5)
Quarter: 2017Q3

REPORT INFORMATION
  Report Type: Report from Study
  Country: IT (occurrence: IT)
  Receive Date: 20170601
  Receipt Date: 20170810
  Transmission Date: 20171127
  Serious: Yes (Other)
  Sender: FDA-Public Use
  Company Number: PHHY2017IT080299

PATIENT
  Sex: Female

DRUGS (6)
  1. METFORMIN [Concomitant]
     Active Substance: METFORMIN HYDROCHLORIDE
     Indication: DIABETES PROPHYLAXIS
     Dosage: 1000 MG, UNK
     Route: 048
     Dates: start: 20160610, end: 20170529
  2. SIGNIFOR LAR [Suspect]
     Active Substance: PASIREOTIDE
     Indication: ACROMEGALY
     Route: 065
  3. CORTISOL ACETATE [Concomitant]
     Indication: GLUCOCORTICOID DEFICIENCY
     Dosage: 25 MG, UNK
     Route: 048
     Dates: start: 20150720, end: 20170529
  4. DEURSIL [Concomitant]
     Active Substance: URSODIOL
     Indication: CHOLELITHIASIS
     Dosage: 450 MG, UNK
     Route: 048
     Dates: start: 20160201, end: 20170609
  5. ESTRADIOL VALERATE. [Concomitant]
     Active Substance: ESTRADIOL VALERATE
     Indication: CONTRACEPTION
     Dosage: 1.8 MG, UNK
     Route: 048
     Dates: start: 2015, end: 20170608
  6. DIENOGEST [Concomitant]
     Active Substance: DIENOGEST
     Indication: CONTRACEPTION
     Dosage: 2.7 MG, UNK
     Route: 048
     Dates: start: 2015, end: 20170608

REACTIONS (1)
  - Type 2 diabetes mellitus [Not Recovered/Not Resolved]

NARRATIVE: CASE EVENT DATE: 20161129
